FAERS Safety Report 6465434-2 (Version None)
Quarter: 2009Q4

REPORT INFORMATION
  Report Type: 
  Country: None (occurrence: None)
  Receive Date: 20091124
  Receipt Date: 20091110
  Transmission Date: 20100525
  Serious: Yes (Hospitalization)
  Sender: FDA-Public Use
  Company Number: PAR_02910_2009

PATIENT
  Age: 38 Year
  Sex: Male
  Weight: 77 kg

DRUGS (3)
  1. IBUPROFEN [Suspect]
     Indication: INFLUENZA
     Dosage: (400 MG QD ORAL)
     Route: 048
     Dates: start: 20090309, end: 20090310
  2. IBUPROFEN [Suspect]
     Indication: UPPER RESPIRATORY TRACT INFECTION
     Dosage: (400 MG QD ORAL)
     Route: 048
     Dates: start: 20090309, end: 20090310
  3. GRIPPOSTAD /02147001/ (GRIPPOSTAD - ACETAMINOPHEN/ASCORBIC-ACID/CAFFEI [Suspect]
     Indication: INFLUENZA
     Dosage: (DF)
     Dates: start: 20090309, end: 20090310

REACTIONS (10)
  - CARDIOVASCULAR DISORDER [None]
  - CHEST DISCOMFORT [None]
  - CONDUCTION DISORDER [None]
  - DIZZINESS [None]
  - ELECTROCARDIOGRAM ST SEGMENT DEPRESSION [None]
  - ELECTROCARDIOGRAM T WAVE INVERSION [None]
  - HYPERTENSION [None]
  - PALPITATIONS [None]
  - PRESYNCOPE [None]
  - PSYCHOSOMATIC DISEASE [None]
